FAERS Safety Report 16791437 (Version 1)
Quarter: 2019Q3

REPORT INFORMATION
  Report Type: Spontaneous
  Country: GB (occurrence: GB)
  Receive Date: 20190910
  Receipt Date: 20190910
  Transmission Date: 20191005
  Serious: No
  Sender: FDA-Public Use
  Company Number: GB-MARKSANS PHARMA LIMITED-2074248

PATIENT

DRUGS (1)
  1. LORATADINE MOLECULE FROM UK MARKET [Suspect]
     Active Substance: LORATADINE
     Route: 048

REACTIONS (3)
  - Nausea [None]
  - Somnolence [None]
  - Diarrhoea [None]
